FAERS Safety Report 8482339-6 (Version None)
Quarter: 2012Q3

REPORT INFORMATION
  Report Type: 
  Country: None (occurrence: None)
  Receive Date: 20120702
  Receipt Date: 20120622
  Transmission Date: 20120928
  Serious: Yes (Other)
  Sender: FDA-Public Use
  Company Number: US-ASTRAZENECA-2012SE33473

PATIENT
  Age: 60 Year
  Sex: Male
  Weight: 123.4 kg

DRUGS (4)
  1. DIOVAN [Concomitant]
     Dosage: 320/325 MG DAILY
  2. NEXIUM [Suspect]
     Route: 048
  3. CRESTOR [Suspect]
     Indication: HYPERLIPIDAEMIA
     Route: 048
     Dates: start: 20090510, end: 20120523
  4. ASPIRIN [Concomitant]

REACTIONS (1)
  - AMNESIA [None]
